FAERS Safety Report 9800806 (Version 2)
Quarter: 2014Q1

REPORT INFORMATION
  Report Type: Report from Study
  Country: US (occurrence: US)
  Receive Date: 20140107
  Receipt Date: 20140107
  Transmission Date: 20141002
  Serious: Yes (Other)
  Sender: FDA-Public Use
  Company Number: US-BAYER-2013-158073

PATIENT
  Age: 77 Year
  Sex: Female

DRUGS (1)
  1. RIOCIGUAT (GUANYLATE CYCLASE STIMULATOR) [Suspect]
     Indication: PULMONARY ARTERIAL HYPERTENSION
     Dosage: 1 MG, TID
     Route: 048
     Dates: start: 20131218

REACTIONS (5)
  - Sputum discoloured [None]
  - Dyspepsia [None]
  - Cough [None]
  - Oropharyngeal pain [None]
  - Nasopharyngitis [None]
